FAERS Safety Report 5243617-7 (Version None)
Quarter: 2007Q1

REPORT INFORMATION
  Report Type: 
  Country: None (occurrence: None)
  Receive Date: 20070220
  Receipt Date: 20070220
  Transmission Date: 20070707
  Serious: Yes (Hospitalization)
  Sender: FDA-Public Use
  Company Number: None

PATIENT
  Sex: Male
  Weight: 121.4 kg

DRUGS (3)
  1. FLUDARABINE [Suspect]
     Indication: BONE MARROW CONDITIONING REGIMEN
     Dosage: 75MG  ONCE DAILY  IV DRIP
     Route: 041
     Dates: start: 20070122, end: 20070126
  2. CAMPATH [Suspect]
     Indication: BONE MARROW CONDITIONING REGIMEN
     Dosage: 20MG  ONCE DAILY  IV DRIP
     Route: 041
     Dates: start: 20070122, end: 20070126
  3. MELPHALAN [Suspect]
     Dosage: 175MG  DAILY  IV DRIP
     Route: 041
     Dates: start: 20070125, end: 20070126

REACTIONS (5)
  - ACUTE RESPIRATORY DISTRESS SYNDROME [None]
  - PNEUMOCYSTIS JIROVECI INFECTION [None]
  - RESPIRATORY DISTRESS [None]
  - TACHYCARDIA [None]
  - VIRAL INFECTION [None]
